FAERS Safety Report 24308229 (Version 1)
Quarter: 2024Q3

REPORT INFORMATION
  Report Type: Report from Study
  Country: BR (occurrence: BR)
  Receive Date: 20240911
  Receipt Date: 20240911
  Transmission Date: 20241016
  Serious: Yes (Other)
  Sender: TAKEDA
  Company Number: BR-TAKEDA-BR202032709

PATIENT
  Sex: Male
  Weight: 54 kg

DRUGS (2)
  1. HEMO-8R [Suspect]
     Active Substance: ANTIHEMOPHILIC FACTOR, HUMAN RECOMBINANT
     Indication: Factor VIII deficiency
     Dosage: 2500 INTERNATIONAL UNIT, QOD
     Route: 042
     Dates: start: 20060317
  2. HEMO-8R [Suspect]
     Active Substance: ANTIHEMOPHILIC FACTOR, HUMAN RECOMBINANT
     Dosage: 2500 INTERNATIONAL UNIT, QOD
     Route: 058

REACTIONS (7)
  - Contusion [Recovering/Resolving]
  - Haemophilic arthropathy [Unknown]
  - Thrombocytopenia [Unknown]
  - Leukopenia [Unknown]
  - Injection site pain [Recovering/Resolving]
  - Platelet count decreased [Recovering/Resolving]
  - Blood immunoglobulin E increased [Unknown]
